FAERS Safety Report 9325435 (Version 1)
Quarter: 2013Q2

REPORT INFORMATION
  Report Type: Spontaneous
  Country: US (occurrence: None)
  Receive Date: 20130531
  Receipt Date: 20130531
  Transmission Date: 20140414
  Serious: Yes (Life-Threatening)
  Sender: FDA-Public Use
  Company Number: None

PATIENT
  Age: 59 Year
  Sex: Male
  Weight: 116.8 kg

DRUGS (1)
  1. MORPHINE [Suspect]
     Indication: PAIN
     Route: 042
     Dates: start: 20130108, end: 20130108

REACTIONS (4)
  - Hypotension [None]
  - Nausea [None]
  - Anxiety [None]
  - Bradycardia [None]
